FAERS Safety Report 8597113-X (Version None)
Quarter: 2012Q3

REPORT INFORMATION
  Report Type: 
  Country: None (occurrence: None)
  Receive Date: 20120816
  Receipt Date: 20120808
  Transmission Date: 20120928
  Serious: No
  Sender: FDA-Public Use
  Company Number: US-BIOGENIDEC-2012BI029209

PATIENT
  Age: 25 Year
  Sex: Female

DRUGS (3)
  1. ALLERGY MEDICATION [Concomitant]
     Indication: MULTIPLE ALLERGIES
  2. TYSABRI [Suspect]
     Indication: MULTIPLE SCLEROSIS
     Route: 042
     Dates: start: 20120626
  3. VALACYCLOVIR [Concomitant]
     Indication: HERPES ZOSTER
     Route: 048

REACTIONS (1)
  - RASH PAPULAR [None]
